FAERS Safety Report 19443293 (Version 1)
Quarter: 2021Q2

REPORT INFORMATION
  Report Type: Spontaneous
  Country: US (occurrence: US)
  Receive Date: 20210621
  Receipt Date: 20210621
  Transmission Date: 20210717
  Serious: No
  Sender: FDA-Public Use
  Company Number: US-VERO BIOTECH-2112927

PATIENT

DRUGS (2)
  1. GENOSYL [Suspect]
     Active Substance: NITRIC OXIDE
  2. GENOSYL [Suspect]
     Active Substance: NITRIC OXIDE
     Route: 055

REACTIONS (4)
  - Device issue [None]
  - No adverse event [None]
  - Device delivery system issue [None]
  - Device malfunction [None]

NARRATIVE: CASE EVENT DATE: 20210521
